FAERS Safety Report 17880311 (Version 1)
Quarter: 2020Q2

REPORT INFORMATION
  Report Type: Report from Study
  Country: CA (occurrence: CA)
  Receive Date: 20200610
  Receipt Date: 20200610
  Transmission Date: 20200714
  Serious: Yes (Other)
  Sender: FDA-Public Use
  Company Number: CA-BIOGEN-2020BI00884137

PATIENT
  Sex: Male

DRUGS (1)
  1. TECFIDERA [Suspect]
     Active Substance: DIMETHYL FUMARATE
     Indication: MULTIPLE SCLEROSIS
     Route: 065
     Dates: start: 201501, end: 201612

REACTIONS (8)
  - Sensory loss [Unknown]
  - Balance disorder [Unknown]
  - Amnesia [Unknown]
  - Hemianaesthesia [Unknown]
  - Cognitive disorder [Unknown]
  - Fatigue [Unknown]
  - Blindness [Unknown]
  - Dizziness [Unknown]
